FAERS Safety Report 16847616 (Version 2)
Quarter: 2019Q4

REPORT INFORMATION
  Report Type: Spontaneous
  Country: IT (occurrence: IT)
  Receive Date: 20190924
  Receipt Date: 20191011
  Transmission Date: 20200122
  Serious: Yes (Other)
  Sender: FDA-Public Use
  Company Number: IT-ASTRAZENECA-2019SF33243

PATIENT
  Sex: Male

DRUGS (5)
  1. FOLINGRAV [Concomitant]
  2. DEPALGOS [Concomitant]
     Active Substance: ACETAMINOPHEN\OXYCODONE HYDROCHLORIDE
     Dosage: 5/325MG 1 TABLET 3 TIMES PER DAY
  3. TAGRISSO [Suspect]
     Active Substance: OSIMERTINIB
     Indication: NON-SMALL CELL LUNG CANCER STAGE IV
     Route: 048
     Dates: start: 20190213, end: 20190911
  4. SOLDESAM [Concomitant]
     Active Substance: DEXAMETHASONE
     Dosage: 32 DROPS/DAY
  5. PANTOPRAZOLE [Concomitant]
     Active Substance: PANTOPRAZOLE

REACTIONS (1)
  - Malignant neoplasm progression [Unknown]
